FAERS Safety Report 12463408 (Version 1)
Quarter: 2016Q2

REPORT INFORMATION
  Report Type: Spontaneous
  Country: US (occurrence: US)
  Receive Date: 20160614
  Receipt Date: 20160614
  Transmission Date: 20160815
  Serious: Yes (Other)
  Sender: FDA-Public Use
  Company Number: US-AMGEN-USASP2016073940

PATIENT
  Age: 67 Year
  Sex: Female

DRUGS (1)
  1. PROLIA [Suspect]
     Active Substance: DENOSUMAB
     Indication: OSTEOPOROSIS POSTMENOPAUSAL
     Dosage: UNK
     Route: 065

REACTIONS (11)
  - Glossodynia [Unknown]
  - Neck pain [Unknown]
  - Intervertebral disc protrusion [Unknown]
  - Back pain [Unknown]
  - Myalgia [Unknown]
  - Jaw disorder [Unknown]
  - Oral pain [Unknown]
  - Sciatica [Unknown]
  - Exostosis of jaw [Unknown]
  - Arthralgia [Unknown]
  - Groin pain [Unknown]
